FAERS Safety Report 8357145-3 (Version None)
Quarter: 2012Q2

REPORT INFORMATION
  Report Type: 
  Country: None (occurrence: None)
  Receive Date: 20120514
  Receipt Date: 20120509
  Transmission Date: 20120825
  Serious: Yes (Death, Hospitalization)
  Sender: FDA-Public Use
  Company Number: FR-BRISTOL-MYERS SQUIBB COMPANY-16583338

PATIENT
  Age: 27 Year
  Sex: Female

DRUGS (6)
  1. LOXAPINE HCL [Suspect]
     Route: 030
     Dates: start: 20100320, end: 20100321
  2. HALDOL [Suspect]
     Route: 048
     Dates: start: 20100320
  3. IMOVANE [Suspect]
     Route: 048
     Dates: start: 20100319, end: 20100320
  4. TRIMEPRAZINE TARTRATE [Suspect]
     Route: 048
     Dates: start: 20100319, end: 20100320
  5. ABILIFY [Suspect]
     Route: 048
     Dates: start: 20100319, end: 20100320
  6. LITHIUM CARBONATE [Suspect]
     Dosage: TERALITHE LP 400 MG, SCORED EXTENDED-RELEASE TABLET (LITHIUM) ALSO TERALITHE 1200 MG DAILY
     Route: 048
     Dates: start: 20100319, end: 20100320

REACTIONS (2)
  - DEATH [None]
  - DELIRIUM [None]
